FAERS Safety Report 5937764-1 (Version None)
Quarter: 2008Q4

REPORT INFORMATION
  Report Type: 
  Country: None (occurrence: None)
  Receive Date: 20081031
  Receipt Date: 20081024
  Transmission Date: 20090506
  Serious: Yes (Death, Hospitalization)
  Sender: FDA-Public Use
  Company Number: PHHO2008TR09205

PATIENT
  Sex: Male

DRUGS (1)
  1. TASIGNA [Suspect]
     Indication: ACUTE LEUKAEMIA
     Dosage: 400 MG, UNK
     Dates: start: 20080506

REACTIONS (12)
  - CARDIAC ARREST [None]
  - CARDIO-RESPIRATORY ARREST [None]
  - ENDOTRACHEAL INTUBATION [None]
  - FEBRILE NEUTROPENIA [None]
  - INFECTION [None]
  - LEUKOCYTOSIS [None]
  - MALIGNANT NEOPLASM PROGRESSION [None]
  - METABOLIC DISORDER [None]
  - NEUTROPENIA [None]
  - PYREXIA [None]
  - RESPIRATORY ARREST [None]
  - WHITE BLOOD CELL COUNT INCREASED [None]
